FAERS Safety Report 9273363 (Version 1)
Quarter: 2013Q2

REPORT INFORMATION
  Report Type: Spontaneous
  Country: BR (occurrence: BR)
  Receive Date: 20130506
  Receipt Date: 20130506
  Transmission Date: 20140414
  Serious: Yes (Other)
  Sender: FDA-Public Use
  Company Number: PHHY2013BR040961

PATIENT
  Sex: Female

DRUGS (2)
  1. RITALIN LA [Suspect]
  2. RITALINA [Suspect]
     Dosage: 10 MG, TID

REACTIONS (2)
  - Skin lesion [Unknown]
  - Drug intolerance [Unknown]
